FAERS Safety Report 17882698 (Version 1)
Quarter: 2020Q2

REPORT INFORMATION
  Report Type: Spontaneous
  Country: BR (occurrence: BR)
  Receive Date: 20200611
  Receipt Date: 20200611
  Transmission Date: 20200714
  Serious: Yes (Other)
  Sender: FDA-Public Use
  Company Number: BR-ABBVIE-20P-020-3266689-00

PATIENT
  Age: 17 Year
  Sex: Male
  Weight: 85 kg

DRUGS (10)
  1. DEPAKOTE ER [Suspect]
     Active Substance: DIVALPROEX SODIUM
     Dosage: 1250MG; 500 MG IN THE MORNING AND 750 MG AT NIGHT; START DATE: END OF 2019
     Route: 048
     Dates: start: 2019
  2. DEPAKOTE ER [Suspect]
     Active Substance: DIVALPROEX SODIUM
     Dosage: DAILY DOSE: F. STRENGTH 500MG; MORNING/ NIGHT;
     Route: 048
  3. GLUCOSAMINE SULFATE + CHONDROITIN [Concomitant]
     Indication: ARTHROPATHY
     Dosage: DAILY DOSE:DILUTED WITH WATER,THERAPY STARTED AFTER THE DEPAKOTE ER APPEARED IN THE STOOLS
     Route: 048
     Dates: start: 20191113
  4. NIMESULIDE [Suspect]
     Active Substance: NIMESULIDE
     Indication: INFECTION
     Route: 065
  5. DEPAKOTE ER [Suspect]
     Active Substance: DIVALPROEX SODIUM
     Dosage: DAILY DOSE: 1000MG; DOSE INCREASED
     Route: 048
     Dates: start: 201811, end: 201907
  6. DEPAKOTE ER [Suspect]
     Active Substance: DIVALPROEX SODIUM
     Dosage: (1 TABL. OF 250 MG + ANOTHER TABL OF 500 MG)
     Route: 048
  7. DEPAKOTE ER [Suspect]
     Active Substance: DIVALPROEX SODIUM
     Dosage: 1500 MG; 500 MG IN THE MORNING AND 1000 MG AT NIGHT; DOSE REDUCED IN THE END OF 2019
     Route: 048
     Dates: start: 201907, end: 2019
  8. DEPAKOTE ER [Suspect]
     Active Substance: DIVALPROEX SODIUM
     Indication: PRODUCT USED FOR UNKNOWN INDICATION
     Dosage: 250 MILLIGRAM; MORNING/EVENING; DAILY DOSE: 500 MG; DOSE INCREASED
     Route: 048
     Dates: start: 201810, end: 201811
  9. DEPAKOTE ER [Suspect]
     Active Substance: DIVALPROEX SODIUM
     Dosage: DAILY DOSE: F. STRENGTH 250MG; AT NIGHT WITH F. STRENGTH 500MG
     Route: 048
  10. GLUCOSAMINE SULFATE + CHONDROITIN [Concomitant]
     Indication: LIGAMENT DISORDER

REACTIONS (19)
  - Epilepsy [Recovered/Resolved]
  - Malabsorption [Unknown]
  - Epilepsy [Recovered/Resolved]
  - Product residue present [Unknown]
  - Abdominal pain [Recovered/Resolved]
  - Inappropriate schedule of product administration [Unknown]
  - Spinal pain [Recovered/Resolved]
  - Treatment noncompliance [Unknown]
  - Infection [Unknown]
  - Unevaluable event [Unknown]
  - Constipation [Recovered/Resolved]
  - Pigmentation disorder [Unknown]
  - Erythema [Unknown]
  - Abdominal discomfort [Recovered/Resolved]
  - Product residue present [Unknown]
  - Off label use [Unknown]
  - Product solubility abnormal [Unknown]
  - Diarrhoea [Recovered/Resolved]
  - Product quality issue [Unknown]

NARRATIVE: CASE EVENT DATE: 2018
